FAERS Safety Report 9165470 (Version 2)
Quarter: 2013Q1

REPORT INFORMATION
  Report Type: Spontaneous
  Country: GB (occurrence: GB)
  Receive Date: 20130315
  Receipt Date: 20130327
  Transmission Date: 20140127
  Serious: Yes (Other)
  Sender: FDA-Public Use
  Company Number: GB-PFIZER INC-2013085693

PATIENT
  Age: 41 Year
  Sex: Female
  Weight: 118.83 kg

DRUGS (7)
  1. ATORVASTATIN [Suspect]
     Indication: ANGINA PECTORIS
     Dosage: 40 MG, UNK
     Route: 048
     Dates: start: 20120228, end: 201211
  2. ATORVASTATIN [Suspect]
     Dosage: 20 MG, UNK
     Route: 048
     Dates: start: 201211, end: 20121220
  3. ASPIRIN [Concomitant]
     Dosage: UNK
  4. BISOPROLOL [Concomitant]
     Dosage: UNK
  5. LEVOTHYROXINE [Concomitant]
     Dosage: UNK
  6. NICORANDIL [Concomitant]
     Dosage: UNK
  7. OMEPRAZOL [Concomitant]
     Dosage: UNK

REACTIONS (2)
  - Chest pain [Recovered/Resolved]
  - Palpitations [Recovered/Resolved]
